FAERS Safety Report 15222376 (Version 1)
Quarter: 2018Q3

REPORT INFORMATION
  Report Type: Spontaneous
  Country: CN (occurrence: CN)
  Receive Date: 20180731
  Receipt Date: 20180731
  Transmission Date: 20181010
  Serious: Yes (Other)
  Sender: FDA-Public Use
  Company Number: CN-OTSUKA-2018_026996

PATIENT

DRUGS (3)
  1. SODIUM VALPROATE [Suspect]
     Active Substance: VALPROATE SODIUM
     Indication: MYELODYSPLASTIC SYNDROME
     Dosage: 0.2 G, 3 IN 1 DAY
     Route: 048
  2. DECITABINE. [Suspect]
     Active Substance: DECITABINE
     Indication: MYELODYSPLASTIC SYNDROME
     Dosage: 20 MG/M2 DAY 1 TO DAY 5, FOR 4 WEEKS, IV INFUSION COMPLETED IN 2 HOURS
     Route: 042
  3. SODIUM VALPROATE [Suspect]
     Active Substance: VALPROATE SODIUM
     Dosage: 0.4 G, 3 IN 1 DAY
     Route: 048

REACTIONS (1)
  - Liver injury [Recovered/Resolved]
